FAERS Safety Report 7761354-1 (Version None)
Quarter: 2011Q3

REPORT INFORMATION
  Report Type: 
  Country: None (occurrence: None)
  Receive Date: 20110920
  Receipt Date: 20110914
  Transmission Date: 20111222
  Serious: Yes (Other)
  Sender: FDA-Public Use
  Company Number: US-PFIZER INC-2011217527

PATIENT
  Sex: Female
  Weight: 60.8 kg

DRUGS (3)
  1. ZYRTEC [Concomitant]
     Indication: HYPERSENSITIVITY
     Dosage: UNK
  2. NASONEX [Concomitant]
     Dosage: UNK
  3. LYRICA [Suspect]
     Indication: PAIN IN EXTREMITY
     Dosage: 150 MG, 2X/DAY
     Route: 048
     Dates: start: 20110902

REACTIONS (4)
  - MEMORY IMPAIRMENT [None]
  - HYPOAESTHESIA [None]
  - SOMNOLENCE [None]
  - DEPRESSION [None]
